FAERS Safety Report 5888844-0 (Version None)
Quarter: 2008Q3

REPORT INFORMATION
  Report Type: 
  Country: None (occurrence: None)
  Receive Date: 20080919
  Receipt Date: 20080911
  Transmission Date: 20090109
  Serious: Yes (Other)
  Sender: FDA-Public Use
  Company Number: PHHY2008BR21153

PATIENT
  Sex: Female

DRUGS (1)
  1. EXELON [Suspect]
     Indication: SENILE DEMENTIA
     Dosage: 9 MG/5 CM2 PATCH, 1 ADHESIVE EVERY 24 HOURS
     Route: 062

REACTIONS (1)
  - DYSENTERY [None]
